FAERS Safety Report 5069585-9 (Version None)
Quarter: 2006Q3

REPORT INFORMATION
  Report Type: 
  Country: None (occurrence: None)
  Receive Date: 20060731
  Receipt Date: 20060720
  Transmission Date: 20061208
  Serious: Yes (Life-Threatening)
  Sender: FDA-Public Use
  Company Number: HQWYE181207MAR06

PATIENT
  Age: 84 Year
  Sex: Male

DRUGS (9)
  1. MYLOTARG [Suspect]
     Indication: ACUTE MYELOID LEUKAEMIA
     Dosage: SEE IMAGE
     Route: 041
     Dates: start: 20051205, end: 20051205
  2. MYLOTARG [Suspect]
     Indication: ACUTE MYELOID LEUKAEMIA
     Dosage: SEE IMAGE
     Route: 041
     Dates: start: 20051219, end: 20051219
  3. FAMOTIDINE [Concomitant]
  4. MAG-LAX (MAGNESIUM HYDROXIDE/PARAFFIN LIQUID) [Concomitant]
  5. DIFLUCAN [Concomitant]
  6. ROHYPNOL (FLUNITRAZEPAM) [Concomitant]
  7. LENDORM [Concomitant]
  8. DEPAS (ETIZOLAM) [Concomitant]
  9. CIPROXAN (CIPROFLOXACIN HYDROCHLORIDE) [Concomitant]

REACTIONS (7)
  - ACUTE MYELOID LEUKAEMIA [None]
  - BLAST CELL COUNT INCREASED [None]
  - EPISTAXIS [None]
  - HICCUPS [None]
  - MALIGNANT NEOPLASM PROGRESSION [None]
  - PLATELET COUNT DECREASED [None]
  - PYREXIA [None]
